FAERS Safety Report 7009829-7 (Version None)
Quarter: 2010Q3

REPORT INFORMATION
  Report Type: 
  Country: None (occurrence: None)
  Receive Date: 20100923
  Receipt Date: 20100914
  Transmission Date: 20110219
  Serious: Yes (Other)
  Sender: FDA-Public Use
  Company Number: CA-PURDUE-CAN-2010-0001521

PATIENT
  Age: 97 Year
  Sex: Female

DRUGS (1)
  1. MS CONTIN TABLETS 15 MG [Suspect]
     Indication: HEADACHE
     Dosage: 1 TABLET, BID
     Route: 048

REACTIONS (2)
  - HAEMATEMESIS [None]
  - WRONG TECHNIQUE IN DRUG USAGE PROCESS [None]
